FAERS Safety Report 8391885-5 (Version None)
Quarter: 2012Q2

REPORT INFORMATION
  Report Type: 
  Country: None (occurrence: None)
  Receive Date: 20120529
  Receipt Date: 20120521
  Transmission Date: 20120825
  Serious: Yes (Hospitalization)
  Sender: FDA-Public Use
  Company Number: US-GLAXOSMITHKLINE-A0978926A

PATIENT
  Age: 70 Year
  Sex: Male
  Weight: 100.9 kg

DRUGS (4)
  1. BUPROPION HCL [Suspect]
     Indication: EX-TOBACCO USER
     Dosage: 150MG PER DAY
     Route: 048
     Dates: start: 20120401
  2. OLANZAPINE [Concomitant]
     Dosage: 5MG PER DAY
  3. LISINOPRIL [Concomitant]
     Indication: HYPERTENSION
     Dosage: 5MG PER DAY
  4. PROAIR HFA [Concomitant]
     Indication: CHRONIC OBSTRUCTIVE PULMONARY DISEASE

REACTIONS (2)
  - PNEUMONIA [None]
  - INFLUENZA [None]
